FAERS Safety Report 13452706 (Version 1)
Quarter: 2017Q2

REPORT INFORMATION
  Report Type: Spontaneous
  Country: US (occurrence: US)
  Receive Date: 20170418
  Receipt Date: 20170418
  Transmission Date: 20170830
  Serious: No
  Sender: FDA-Public Use
  Company Number: US-GLAXOSMITHKLINE-US2017GSK052347

PATIENT
  Sex: Male

DRUGS (3)
  1. SORIATANE [Suspect]
     Active Substance: ACITRETIN
     Dosage: 10 MG, U
  2. SORIATANE [Suspect]
     Active Substance: ACITRETIN
     Dosage: 20 MG, U
  3. SORIATANE [Suspect]
     Active Substance: ACITRETIN
     Indication: PRODUCT USED FOR UNKNOWN INDICATION
     Dosage: 10 MG, U

REACTIONS (3)
  - Myalgia [Unknown]
  - Dry mouth [Unknown]
  - Fatigue [Unknown]
